FAERS Safety Report 7400469-4 (Version None)
Quarter: 2011Q2

REPORT INFORMATION
  Report Type: 
  Country: None (occurrence: None)
  Receive Date: 20110407
  Receipt Date: 20110324
  Transmission Date: 20111010
  Serious: Yes (Hospitalization)
  Sender: FDA-Public Use
  Company Number: US-JNJFOC-20110311412

PATIENT
  Sex: Male
  Weight: 34.7 kg

DRUGS (5)
  1. ANTIBIOTICS [Concomitant]
     Indication: INFLAMMATORY BOWEL DISEASE
  2. REMICADE [Suspect]
     Indication: CROHN'S DISEASE
     Route: 042
  3. HUMIRA [Concomitant]
  4. FOLIC ACID [Concomitant]
  5. METHOTREXATE [Concomitant]

REACTIONS (2)
  - CROHN'S DISEASE [None]
  - CONDITION AGGRAVATED [None]
